FAERS Safety Report 6925286-0 (Version None)
Quarter: 2010Q3

REPORT INFORMATION
  Report Type: 
  Country: None (occurrence: None)
  Receive Date: 20100810
  Receipt Date: 20100727
  Transmission Date: 20110219
  Serious: Yes (Death, Hospitalization)
  Sender: FDA-Public Use
  Company Number: 1000015482

PATIENT
  Age: 84 Year
  Sex: Female

DRUGS (6)
  1. MEMANTINE HCL [Suspect]
     Indication: DEMENTIA ALZHEIMER'S TYPE
     Dosage: 20 MG (20 MG, 1 IN 1 D), ORAL
     Route: 048
     Dates: end: 20100518
  2. SERTRALINE HYDROCHLORIDE [Suspect]
     Dosage: 50 MG (50 MG, 1 IN 1 D), ORAL
     Route: 048
     Dates: end: 20100518
  3. SINTROM [Suspect]
     Indication: ATRIAL FIBRILLATION
     Dosage: ORAL
     Route: 048
     Dates: start: 20100318, end: 20100518
  4. ENOXAPARIN SODIUM [Suspect]
     Dosage: 240 MG (240 MG, 1 IN 1 D), SUBCUTANEOUS
     Route: 058
     Dates: start: 20100101, end: 20100518
  5. BISOPROLOL HEMIFUMARATE (TABLETS) [Concomitant]
  6. RIVASTIGMINE (TABLETS) [Concomitant]

REACTIONS (10)
  - ABDOMINAL PAIN [None]
  - DIALYSIS [None]
  - DRUG INTERACTION [None]
  - HAEMATOCRIT DECREASED [None]
  - HAEMOGLOBIN DECREASED [None]
  - HAEMORRHAGE [None]
  - MUSCLE HAEMORRHAGE [None]
  - RENAL FAILURE ACUTE [None]
  - RESPIRATORY FAILURE [None]
  - RETROPERITONEAL HAEMATOMA [None]
